FAERS Safety Report 19634394 (Version 1)
Quarter: 2021Q3

REPORT INFORMATION
  Report Type: Spontaneous
  Country: JP (occurrence: JP)
  Receive Date: 20210730
  Receipt Date: 20210730
  Transmission Date: 20211014
  Serious: Yes (Other)
  Sender: FDA-Public Use
  Company Number: JP-SUN PHARMACEUTICAL INDUSTRIES LTD-2021R1-306033

PATIENT
  Age: 70 Year
  Sex: Male

DRUGS (3)
  1. CARVEDILOL. [Suspect]
     Active Substance: CARVEDILOL
     Indication: VENTRICULAR DYSFUNCTION
     Dosage: 2.5 MILLIGRAM, DAILY
     Route: 065
  2. PROPRANOLOL [Suspect]
     Active Substance: PROPRANOLOL HYDROCHLORIDE
     Indication: ELECTROCARDIOGRAM QRS COMPLEX ABNORMAL
     Dosage: UNK
     Route: 065
  3. DIGOXIN. [Suspect]
     Active Substance: DIGOXIN
     Indication: VENTRICULAR DYSFUNCTION
     Dosage: UNK
     Route: 065

REACTIONS (2)
  - Bundle branch block bilateral [Unknown]
  - Electrocardiogram QRS complex prolonged [Unknown]
